FAERS Safety Report 7297853-9 (Version None)
Quarter: 2011Q1

REPORT INFORMATION
  Report Type: 
  Country: None (occurrence: None)
  Receive Date: 20110217
  Receipt Date: 20101116
  Transmission Date: 20110831
  Serious: No
  Sender: FDA-Public Use
  Company Number: US-KINGPHARMUSA00001-K201001406

PATIENT
  Age: 64 Year
  Sex: Female

DRUGS (2)
  1. NAPROXEN [Concomitant]
  2. FLECTOR [Suspect]
     Indication: MYALGIA
     Dosage: 1 PATCH, UNK
     Route: 061
     Dates: start: 20101116

REACTIONS (3)
  - HEART RATE INCREASED [None]
  - PALPITATIONS [None]
  - PARAESTHESIA [None]
